FAERS Safety Report 11202431 (Version 2)
Quarter: 2019Q2

REPORT INFORMATION
  Report Type: Spontaneous
  Country: SE (occurrence: SE)
  Receive Date: 20150619
  Receipt Date: 20190624
  Transmission Date: 20190711
  Serious: Yes (Death, Hospitalization, Other)
  Sender: FDA-Public Use
  Company Number: SE-RECKITT BENCKISER PHARMACEUTICAL, INC-RB-080344-2015

PATIENT
  Age: 31 Year
  Sex: Male
  Weight: 140 kg

DRUGS (7)
  1. CAFFEINE. [Suspect]
     Active Substance: CAFFEINE
     Indication: PRODUCT USED FOR UNKNOWN INDICATION
     Dosage: UNK
     Route: 048
  2. BUPRENORPHINE. [Suspect]
     Active Substance: BUPRENORPHINE
     Indication: PRODUCT USED FOR UNKNOWN INDICATION
     Dosage: UNK
     Route: 065
  3. LISDEXAMPHETAMINE [Concomitant]
     Active Substance: LISDEXAMFETAMINE
     Indication: PRODUCT USED FOR UNKNOWN INDICATION
     Dosage: 130 MG, QD
     Route: 065
  4. TETRAHYDROCANNABINOL [Suspect]
     Active Substance: DRONABINOL
     Indication: PRODUCT USED FOR UNKNOWN INDICATION
     Dosage: UNK
     Route: 065
  5. TRAMADOL. [Suspect]
     Active Substance: TRAMADOL
     Indication: PRODUCT USED FOR UNKNOWN INDICATION
     Dosage: UNK
     Route: 065
  6. CLOMIPRAMINE [Concomitant]
     Active Substance: CLOMIPRAMINE
     Indication: PRODUCT USED FOR UNKNOWN INDICATION
     Dosage: 375 MG, QD
     Route: 065
  7. FLUNITRAZEPAM [Concomitant]
     Active Substance: FLUNITRAZEPAM
     Indication: PRODUCT USED FOR UNKNOWN INDICATION
     Dosage: 1 MG, QD
     Route: 065

REACTIONS (16)
  - Seizure [Recovered/Resolved]
  - Agitation [Recovered/Resolved]
  - Hypertension [Recovered/Resolved]
  - Circulatory collapse [Fatal]
  - Confusional state [Recovered/Resolved]
  - Substance abuse [Recovered/Resolved]
  - Blood creatine phosphokinase increased [Recovered/Resolved]
  - Disorientation [Recovered/Resolved]
  - Aggression [Recovered/Resolved]
  - Stress [Recovered/Resolved]
  - Hyperhidrosis [Recovered/Resolved]
  - Adrenergic syndrome [Recovered/Resolved]
  - Tachycardia [Recovered/Resolved]
  - Drug screen positive [Recovered/Resolved]
  - Hyperthermia [Recovered/Resolved]
  - Drug interaction [Recovered/Resolved]
